FAERS Safety Report 24111750 (Version 1)
Quarter: 2024Q3

REPORT INFORMATION
  Report Type: Spontaneous
  Country: CA (occurrence: CA)
  Receive Date: 20240718
  Receipt Date: 20240718
  Transmission Date: 20241017
  Serious: Yes (Hospitalization, Other)
  Sender: GILEAD
  Company Number: CA-GILEAD-2024-0680709

PATIENT
  Age: 60 Year
  Sex: Male

DRUGS (2)
  1. LENACAPAVIR [Interacting]
     Active Substance: LENACAPAVIR
     Indication: Product used for unknown indication
     Route: 065
  2. COLCHICINE [Interacting]
     Active Substance: COLCHICINE
     Indication: Product used for unknown indication
     Route: 065

REACTIONS (9)
  - Drug interaction [Not Recovered/Not Resolved]
  - Coronary artery bypass [Unknown]
  - Dehydration [Unknown]
  - Urinary tract infection [Unknown]
  - Weight decreased [Unknown]
  - Bacterial infection [Unknown]
  - Anaemia [Unknown]
  - Nausea [Unknown]
  - Cough [Unknown]

NARRATIVE: CASE EVENT DATE: 20240401
